FAERS Safety Report 6773167-8 (Version None)
Quarter: 2010Q2

REPORT INFORMATION
  Report Type: 
  Country: None (occurrence: None)
  Receive Date: 20100616
  Receipt Date: 20100608
  Transmission Date: 20101027
  Serious: No
  Sender: FDA-Public Use
  Company Number: PR-ABBOTT-10P-131-0649693-00

PATIENT
  Sex: Female

DRUGS (4)
  1. FENOFIBRIC ACID [Suspect]
     Indication: HYPERTRIGLYCERIDAEMIA
     Route: 048
     Dates: start: 20100531, end: 20100602
  2. METOPROLOL [Concomitant]
     Indication: HYPERTENSION
     Route: 048
  3. NAPROXEN SODIUM [Concomitant]
     Indication: PAIN
     Route: 048
  4. ORPHENADRINE CITRATE [Concomitant]
     Indication: PAIN
     Route: 048

REACTIONS (1)
  - URTICARIA [None]
